FAERS Safety Report 10359347 (Version 1)
Quarter: 2014Q3

REPORT INFORMATION
  Report Type: Spontaneous
  Country: US (occurrence: US)
  Receive Date: 20140804
  Receipt Date: 20140804
  Transmission Date: 20150326
  Serious: No
  Sender: FDA-Public Use
  Company Number: US-ASTRAZENECA-2014SE54076

PATIENT
  Sex: Female

DRUGS (4)
  1. OTC POTASSIUM [Concomitant]
     Indication: MUSCLE SPASMS
  2. BLOOD PRESSURE MEDICATION [Concomitant]
     Active Substance: UNSPECIFIED INGREDIENT
  3. SYMBICORT [Suspect]
     Active Substance: BUDESONIDE\FORMOTEROL FUMARATE DIHYDRATE
     Indication: TOBACCO USER
     Dosage: 160/ 4.5MCG/UNKNOWN
     Route: 055
     Dates: start: 2014
  4. SYMBICORT [Suspect]
     Active Substance: BUDESONIDE\FORMOTEROL FUMARATE DIHYDRATE
     Indication: DYSPNOEA
     Dosage: 160/ 4.5MCG/UNKNOWN
     Route: 055
     Dates: start: 2014

REACTIONS (4)
  - Muscle spasms [Recovered/Resolved]
  - Hypertension [Unknown]
  - Intentional product misuse [Unknown]
  - Hypokalaemia [Unknown]

NARRATIVE: CASE EVENT DATE: 2014
